FAERS Safety Report 5347852-9 (Version None)
Quarter: 2007Q2

REPORT INFORMATION
  Report Type: 
  Country: None (occurrence: None)
  Receive Date: 20070515
  Receipt Date: 20060517
  Transmission Date: 20071010
  Serious: Yes (Hospitalization, Disabling, Other)
  Sender: FDA-Public Use
  Company Number: US200603000462

PATIENT
  Age: 13 Year
  Sex: Female

DRUGS (19)
  1. KEFLEX [Suspect]
     Indication: STREPTOCOCCAL INFECTION
  2. ALBUTEROL [Concomitant]
  3. ATROVENT [Concomitant]
  4. CLINDAMYCIN (CLINDAMYCIN) [Concomitant]
  5. BECLOVENT (BECLOMETASONE DIPROPIONATE) [Concomitant]
  6. SOLU-MEDRA (METHYLPREDNISOLONE SODIUM SUCCINATE) [Concomitant]
  7. ACETAMINOPHEN [Concomitant]
  8. DIFLUCAN [Concomitant]
  9. LACRI-LUBE (LANOLIN, MINERAL OIL LIGHT, PETROLATUM) [Concomitant]
  10. ZANTAC [Concomitant]
  11. MAGNESIUM GLUCONATE (MAGNESIUM GUCONATE) [Concomitant]
  12. MYCOSTATIN [Concomitant]
  13. AVEENO BATH (AVENA, PETROLATUM) [Concomitant]
  14. SUSTACAL (FATS NOS, PROTEINS NOS, VITAMINS NOS) [Concomitant]
  15. MERCUROCHROME (MERBROMIN) [Concomitant]
  16. BENADRYL ^PARKE DAVIS^ (DIPHENHYDRAMINE HYDROCHLORIDE) [Concomitant]
  17. MOTRIN [Concomitant]
  18. PROVENTIL (SALBUTAMOL SULFATE) [Concomitant]
  19. BIAXIN [Concomitant]

REACTIONS (6)
  - BLINDNESS [None]
  - EYE DISORDER [None]
  - INTERNAL INJURY [None]
  - LUNG DISORDER [None]
  - STEVENS-JOHNSON SYNDROME [None]
  - TOOTH DISORDER [None]
